FAERS Safety Report 17537943 (Version 1)
Quarter: 2020Q1

REPORT INFORMATION
  Report Type: Spontaneous
  Country: GB (occurrence: GB)
  Receive Date: 20200313
  Receipt Date: 20200313
  Transmission Date: 20200409
  Serious: Yes (Disabling, Other)
  Sender: FDA-Public Use
  Company Number: GB-PFIZER INC-2020105759

PATIENT
  Age: 61 Year
  Sex: Female
  Weight: 65 kg

DRUGS (2)
  1. LETROZOLE. [Concomitant]
     Active Substance: LETROZOLE
     Dosage: UNK
  2. PALBOCICLIB [Suspect]
     Active Substance: PALBOCICLIB
     Indication: OESTROGEN RECEPTOR POSITIVE BREAST CANCER
     Dosage: 125 MG, UNK
     Route: 048
     Dates: start: 20190702, end: 20190915

REACTIONS (4)
  - Lung infiltration [Unknown]
  - Acute interstitial pneumonitis [Recovering/Resolving]
  - Dyspnoea exertional [Unknown]
  - Cough [Unknown]

NARRATIVE: CASE EVENT DATE: 20190915
